FAERS Safety Report 16578862 (Version 1)
Quarter: 2019Q3

REPORT INFORMATION
  Report Type: Spontaneous
  Country: US (occurrence: US)
  Receive Date: 20190716
  Receipt Date: 20190716
  Transmission Date: 20191004
  Serious: Yes (Other)
  Sender: FDA-Public Use
  Company Number: US-MYLANLABS-2019M1065546

PATIENT
  Age: 50 Year
  Sex: Female
  Weight: 86 kg

DRUGS (3)
  1. VITAMIN C [Concomitant]
     Active Substance: ASCORBIC ACID
  2. ESTRADIOL TRANSDERMAL SYSTEM [Suspect]
     Active Substance: ESTRADIOL
     Indication: MENOPAUSAL SYMPTOMS
     Dosage: UNK
     Route: 062
     Dates: start: 201904, end: 20190710
  3. OMEPRAZOLE. [Concomitant]
     Active Substance: OMEPRAZOLE

REACTIONS (11)
  - Pain in extremity [Recovered/Resolved]
  - Application site laceration [Recovering/Resolving]
  - Application site scar [Not Recovered/Not Resolved]
  - Application site rash [Recovering/Resolving]
  - Asthenia [Not Recovered/Not Resolved]
  - Application site erythema [Recovering/Resolving]
  - Application site vesicles [Recovering/Resolving]
  - Application site scab [Recovering/Resolving]
  - Myocardial infarction [Recovered/Resolved]
  - Heart rate increased [Not Recovered/Not Resolved]
  - Fatigue [Not Recovered/Not Resolved]

NARRATIVE: CASE EVENT DATE: 2019
